FAERS Safety Report 6915906-9 (Version None)
Quarter: 2010Q3

REPORT INFORMATION
  Report Type: 
  Country: None (occurrence: None)
  Receive Date: 20100810
  Receipt Date: 20100805
  Transmission Date: 20110219
  Serious: Yes (Death, Life-Threatening, Hospitalization)
  Sender: FDA-Public Use
  Company Number: FR-ASTRAZENECA-2010SE36872

PATIENT
  Age: 58 Year
  Sex: Male

DRUGS (9)
  1. NEXIUM [Suspect]
     Route: 042
     Dates: start: 20100419
  2. VANCOMYCIN HCL [Suspect]
     Route: 042
     Dates: start: 20100418, end: 20100512
  3. CANCIDAS [Suspect]
     Route: 042
     Dates: start: 20100419, end: 20100513
  4. PERFALGAN [Suspect]
     Route: 042
     Dates: start: 20100427, end: 20100506
  5. ROCEPHIN [Suspect]
     Dates: start: 20100426, end: 20100504
  6. PIPERACILLIN AND TAZOBACTAM [Suspect]
     Dates: start: 20100419, end: 20100424
  7. ZOVIRAX [Suspect]
     Dates: start: 20100419, end: 20100424
  8. SOLU-MEDROL [Suspect]
     Dates: start: 20100420, end: 20100425
  9. TEGELINE LFB [Suspect]
     Dates: start: 20100420, end: 20100424

REACTIONS (10)
  - BONE MARROW FAILURE [None]
  - CARDIO-RESPIRATORY ARREST [None]
  - CYTOMEGALOVIRUS TEST POSITIVE [None]
  - DRUG INEFFECTIVE [None]
  - DRUG TOXICITY [None]
  - HAEMOPHILUS INFECTION [None]
  - LUNG DISORDER [None]
  - SEPSIS [None]
  - STAPHYLOCOCCUS TEST POSITIVE [None]
  - STEVENS-JOHNSON SYNDROME [None]
